FAERS Safety Report 8396043 (Version 2)
Quarter: 2013Q3

REPORT INFORMATION
  Report Type: Spontaneous
  Country: US (occurrence: US)
  Receive Date: 20120208
  Receipt Date: 20130723
  Transmission Date: 20140515
  Serious: No
  Sender: FDA-Public Use
  Company Number: US-BIOGENIDEC-2012BI003878

PATIENT
  Age: 52 Year
  Sex: Male

DRUGS (1)
  1. TYSABRI [Suspect]
     Indication: MULTIPLE SCLEROSIS
     Route: 042
     Dates: start: 20111227

REACTIONS (12)
  - Restless legs syndrome [Recovered/Resolved]
  - Depression [Recovered/Resolved]
  - Stress [Not Recovered/Not Resolved]
  - Antisocial behaviour [Not Recovered/Not Resolved]
  - Suicidal ideation [Recovered/Resolved]
  - Speech disorder [Not Recovered/Not Resolved]
  - Feeling abnormal [Recovered/Resolved]
  - Confusional state [Not Recovered/Not Resolved]
  - Sleep disorder [Recovered/Resolved]
  - Headache [Recovered/Resolved]
  - Drug ineffective [Not Recovered/Not Resolved]
  - Fatigue [Not Recovered/Not Resolved]
